FAERS Safety Report 9030343 (Version 2)
Quarter: 2013Q1

REPORT INFORMATION
  Report Type: Spontaneous
  Country: JP (occurrence: JP)
  Receive Date: 20130122
  Receipt Date: 20130206
  Transmission Date: 20140127
  Serious: Yes (Hospitalization, Other)
  Sender: FDA-Public Use
  Company Number: JP-PFIZER INC-2013013451

PATIENT
  Sex: Female

DRUGS (5)
  1. NORVASC [Suspect]
     Indication: HYPERTENSION
     Dosage: UNK
     Route: 048
  2. LASIX [Suspect]
     Dosage: UNK
  3. URSO [Concomitant]
     Dosage: UNK
     Route: 048
  4. GLUCONSAN K [Concomitant]
     Dosage: UNK
     Route: 048
  5. SELARA [Concomitant]
     Indication: HYPERTENSION
     Dosage: UNK
     Route: 048

REACTIONS (1)
  - Blood potassium decreased [Unknown]
